FAERS Safety Report 17538027 (Version 2)
Quarter: 2020Q2

REPORT INFORMATION
  Report Type: Spontaneous
  Country: EG (occurrence: EG)
  Receive Date: 20200313
  Receipt Date: 20200408
  Transmission Date: 20200713
  Serious: Yes (Hospitalization)
  Sender: FDA-Public Use
  Company Number: EG-PFIZER INC-2020105660

PATIENT
  Age: 57 Year
  Sex: Male

DRUGS (5)
  1. MERONEM [Suspect]
     Active Substance: MEROPENEM
     Indication: ANTIBIOTIC THERAPY
     Dosage: 1 MG, 1X/DAY (EVERY 24HRS)
     Dates: start: 20200115, end: 202001
  2. EPANUTIN [Suspect]
     Active Substance: PHENYTOIN SODIUM
     Indication: SEIZURE PROPHYLAXIS
     Dosage: 100 MG, UNK
     Route: 042
     Dates: start: 20200112, end: 202001
  3. ACETYLCYSTEINE. [Concomitant]
     Active Substance: ACETYLCYSTEINE
     Indication: SPUTUM INCREASED
     Dosage: 200 MG, UNK
     Route: 048
     Dates: start: 20200113
  4. COLISTIN [Suspect]
     Active Substance: COLISTIN
     Indication: BACTERIAL INFECTION
     Dosage: 2 MILLION IU, UNK
     Route: 055
     Dates: start: 20200114, end: 202001
  5. TAZOCIN [Suspect]
     Active Substance: PIPERACILLIN SODIUM\TAZOBACTAM SODIUM
     Indication: ANTIBIOTIC THERAPY
     Dosage: 4.5 MG, 4X/DAY
     Dates: start: 20200113, end: 202001

REACTIONS (2)
  - Hepatic enzyme increased [Recovered/Resolved]
  - Hyperkalaemia [Recovered/Resolved]

NARRATIVE: CASE EVENT DATE: 20200113
